FAERS Safety Report 4384675-1 (Version None)
Quarter: 2004Q2

REPORT INFORMATION
  Report Type: 
  Country: None (occurrence: None)
  Receive Date: 20040621
  Receipt Date: 20040607
  Transmission Date: 20050107
  Serious: Yes (Hospitalization, Other)
  Sender: FDA-Public Use
  Company Number: 2004028900

PATIENT
  Age: 26 Year
  Sex: Male
  Weight: 72 kg

DRUGS (5)
  1. ZELDOX (CAPSULES)(ZIPRASIDONE) [Suspect]
     Indication: PSYCHOTIC DISORDER
     Dosage: 160 MG (80MG, 2 IN 1 D) ORAL
     Route: 048
     Dates: start: 20040220, end: 20040402
  2. PROTHIPENDYL HYDROCHLORIDE (PROTHIPENDYL HYDROCHLORIDE) [Concomitant]
  3. LORAZEPAM [Concomitant]
  4. SILYMARIN (SILYMARIN) [Concomitant]
  5. PENFLURIDOL (PENFLURIDOL) [Concomitant]

REACTIONS (5)
  - DRUG ERUPTION [None]
  - INFLAMMATION LOCALISED [None]
  - OEDEMA PERIPHERAL [None]
  - PRURITUS [None]
  - URTICARIA GENERALISED [None]
